FAERS Safety Report 9873206 (Version 2)
Quarter: 2014Q1

REPORT INFORMATION
  Report Type: Other
  Country: US (occurrence: US)
  Receive Date: 20140206
  Receipt Date: 20140206
  Transmission Date: 20141002
  Serious: Yes (Other)
  Sender: FDA-Public Use
  Company Number: US-ACORDA-ACO_101174_2014

PATIENT
  Age: 36 Year
  Sex: Female

DRUGS (1)
  1. AMPYRA [Suspect]
     Indication: GAIT DISTURBANCE
     Dosage: 10 MG,BID
     Route: 048
     Dates: start: 20111109

REACTIONS (4)
  - Wound infection staphylococcal [Recovered/Resolved]
  - Skin wound [Recovered/Resolved]
  - Arthropod bite [Unknown]
  - Influenza [Unknown]
